FAERS Safety Report 6305144-5 (Version None)
Quarter: 2009Q3

REPORT INFORMATION
  Report Type: 
  Country: None (occurrence: None)
  Receive Date: 20090811
  Receipt Date: 20090731
  Transmission Date: 20100115
  Serious: Yes (Other)
  Sender: FDA-Public Use
  Company Number: FR-BAXTER-2009BH012515

PATIENT
  Age: 30 Year
  Sex: Male

DRUGS (6)
  1. SEVOFLURANE [Suspect]
     Indication: ANAESTHESIA
     Route: 055
  2. ALFENTANIL [Suspect]
     Indication: ANAESTHESIA
     Route: 042
  3. VALPROATE SODIUM [Concomitant]
     Indication: CONVULSION
     Route: 065
  4. LAMOTRIGINE [Concomitant]
     Indication: CONVULSION
     Route: 065
  5. CITALOPRAM [Concomitant]
     Indication: CONVULSION
     Route: 065
  6. NITRIC OXIDE [Concomitant]
     Indication: ANAESTHESIA
     Route: 055

REACTIONS (2)
  - BRADYCARDIA [None]
  - CARDIAC ARREST [None]
